FAERS Safety Report 18649902 (Version 1)
Quarter: 2020Q4

REPORT INFORMATION
  Report Type: Spontaneous
  Country: DE (occurrence: DE)
  Receive Date: 20201222
  Receipt Date: 20201222
  Transmission Date: 20210114
  Serious: Yes (Hospitalization)
  Sender: FDA-Public Use
  Company Number: DE-ASTRAZENECA-2020SF67472

PATIENT
  Age: 64 Year
  Sex: Female
  Weight: 88 kg

DRUGS (15)
  1. ATORVASTATIN [Concomitant]
     Active Substance: ATORVASTATIN
     Dosage: 20 MG, 0-0-1-0, TABLETS
     Route: 048
  2. ACETYLSALICYLIC ACID [Concomitant]
     Active Substance: ASPIRIN
     Dosage: 100 MG, BREAK, TABLETS
     Route: 048
  3. MAGALDRAT [Concomitant]
     Active Substance: MAGALDRATE
     Dosage: 800 MG, 2-2-0-2, TABLETS
     Route: 048
  4. EMPAGLIFLOZIN [Concomitant]
     Active Substance: EMPAGLIFLOZIN
     Dosage: DISCONTINUED
     Route: 048
  5. FOLIC ACID. [Concomitant]
     Active Substance: FOLIC ACID
     Dosage: 5 MG, WEDNESDAYS, TABLETS
     Route: 048
  6. TIOTROPIUMBROMID [Concomitant]
     Dosage: 18 UG, 1-0-0-0, CAPSULES
     Route: 055
  7. INSULIN HUMAN [Concomitant]
     Active Substance: INSULIN HUMAN
     Dosage: PAUSED, AMPOULES
     Route: 058
  8. ESOMEPRAZOLE MAGNESIUM. [Suspect]
     Active Substance: ESOMEPRAZOLE MAGNESIUM
     Dosage: 20 MG, 0-0-1-0, TABLETS
     Route: 048
  9. JANUMET [Suspect]
     Active Substance: METFORMIN HYDROCHLORIDE\SITAGLIPTIN PHOSPHATE
     Dosage: 100|50 MG, 1-0-0-0
     Route: 048
  10. FAMOTIDINE. [Concomitant]
     Active Substance: FAMOTIDINE
     Dosage: DISCONTINUED
     Route: 048
  11. RAMIPRIL. [Concomitant]
     Active Substance: RAMIPRIL
     Dosage: 2.5 MG, BREAK, TABLETS
     Route: 048
  12. METHOTREXATE. [Concomitant]
     Active Substance: METHOTREXATE
     Dosage: 10 MG, PAUSED BY PATIENT, TABLETS
     Route: 048
  13. INSULIN GLARGIN [Concomitant]
     Active Substance: INSULIN GLARGINE
     Dosage: PAUSED, AMPOULES
     Route: 058
  14. FLUTICASON/SALMETEROL [Concomitant]
     Dosage: 500|50 UG, 1-0-1-0, METERED AEROSOL
     Route: 055
  15. ALLOPURINOL. [Concomitant]
     Active Substance: ALLOPURINOL
     Dosage: 100 MG, 0.5-0-0-0, TABLETS
     Route: 048

REACTIONS (5)
  - Vomiting [Unknown]
  - Abdominal pain upper [Unknown]
  - Abdominal pain [Unknown]
  - Nausea [Unknown]
  - Product prescribing error [Unknown]
